FAERS Safety Report 7012872-5 (Version None)
Quarter: 2010Q3

REPORT INFORMATION
  Report Type: 
  Country: None (occurrence: None)
  Receive Date: 20100922
  Receipt Date: 20100907
  Transmission Date: 20110219
  Serious: Yes (Disabling)
  Sender: FDA-Public Use
  Company Number: 2010SP048098

PATIENT
  Age: 24 Year
  Sex: Female
  Weight: 68.4932 kg

DRUGS (1)
  1. IMPLANON [Suspect]
     Indication: CONTRACEPTION
     Dates: start: 20100224

REACTIONS (2)
  - DYSMENORRHOEA [None]
  - MUSCULOSKELETAL DISORDER [None]
